FAERS Safety Report 8103579-1 (Version None)
Quarter: 2012Q1

REPORT INFORMATION
  Report Type: 
  Country: None (occurrence: None)
  Receive Date: 20120201
  Receipt Date: 20120131
  Transmission Date: 20120608
  Serious: Yes (Death, Other)
  Sender: FDA-Public Use
  Company Number: PHHY2012BR007985

PATIENT
  Age: 62 Year
  Sex: Female

DRUGS (2)
  1. LOSARTAN POTASSIUM [Concomitant]
  2. RASILEZ [Suspect]
     Route: 048

REACTIONS (3)
  - LOSS OF CONSCIOUSNESS [None]
  - FEELING ABNORMAL [None]
  - SUDDEN DEATH [None]
